FAERS Safety Report 8501464-4 (Version None)
Quarter: 2012Q3

REPORT INFORMATION
  Report Type: 
  Country: None (occurrence: None)
  Receive Date: 20120710
  Receipt Date: 20120703
  Transmission Date: 20120928
  Serious: Yes (Other)
  Sender: FDA-Public Use
  Company Number: BR-ROCHE-1084200

PATIENT
  Sex: Female
  Weight: 67 kg

DRUGS (1)
  1. MABTHERA [Suspect]
     Indication: RHEUMATOID ARTHRITIS
     Route: 042
     Dates: start: 20111228, end: 20120111

REACTIONS (4)
  - HEADACHE [None]
  - NAUSEA [None]
  - MALAISE [None]
  - CONVULSION [None]
